FAERS Safety Report 5080044-X (Version None)
Quarter: 2006Q3

REPORT INFORMATION
  Report Type: 
  Country: None (occurrence: None)
  Receive Date: 20060810
  Receipt Date: 20060731
  Transmission Date: 20061208
  Serious: Yes (Other)
  Sender: FDA-Public Use
  Company Number: 2006094830

PATIENT
  Age: 62 Year
  Sex: Male
  Weight: 101.6057 kg

DRUGS (14)
  1. LYRICA [Suspect]
     Indication: DIABETIC NEUROPATHY
     Dosage: 150 MG (50 MG, TID; EVERY DAY), ORAL
     Route: 048
     Dates: start: 20060607, end: 20060701
  2. LIPITOR [Concomitant]
  3. TOPROL-XL [Concomitant]
  4. PLAVIX [Concomitant]
  5. ASPIRIN [Concomitant]
  6. PROPOXYPHENE HCL AND ACETAMINOPHEN (DEXTROPROPOXYPHENE HYDROCHLORIDE, [Concomitant]
  7. CLARINEX [Concomitant]
  8. ISOSSORBIDE MONONITRATE (ISOSORBIDE MONONITRATE) [Concomitant]
  9. FUROSEMIDE [Concomitant]
  10. LANTUS [Concomitant]
  11. TERAZOSIN (TERAZOSIN) [Concomitant]
  12. ZETIA [Concomitant]
  13. INSULIN [Concomitant]
  14. BIO-INSULIN R (INSULIN HUMAN) [Concomitant]

REACTIONS (12)
  - BLOOD GLUCOSE INCREASED [None]
  - DIARRHOEA [None]
  - DRY MOUTH [None]
  - ERYTHEMA [None]
  - GASTROINTESTINAL PAIN [None]
  - HUNGER [None]
  - JOINT SWELLING [None]
  - OEDEMA PERIPHERAL [None]
  - PAIN IN EXTREMITY [None]
  - PARAESTHESIA [None]
  - POLLAKIURIA [None]
  - WEIGHT INCREASED [None]
